FAERS Safety Report 9376354 (Version 1)
Quarter: 2013Q3

REPORT INFORMATION
  Report Type: Spontaneous
  Country: US (occurrence: US)
  Receive Date: 20130701
  Receipt Date: 20130701
  Transmission Date: 20140515
  Serious: Yes (Other)
  Sender: FDA-Public Use
  Company Number: US-BRISTOL-MYERS SQUIBB COMPANY-19056209

PATIENT
  Age: 69 Year
  Sex: Male
  Weight: 98.86 kg

DRUGS (1)
  1. METFORMIN HCL [Suspect]
     Dosage: 500 (UNITS NOS).

REACTIONS (2)
  - Loss of consciousness [Unknown]
  - Blood glucose decreased [Unknown]
